FAERS Safety Report 19944740 (Version 6)
Quarter: 2022Q1

REPORT INFORMATION
  Report Type: Report from Study
  Country: US (occurrence: None)
  Receive Date: 20211012
  Receipt Date: 20220202
  Transmission Date: 20220423
  Serious: Yes (Death, Hospitalization)
  Sender: FDA-Public Use
  Company Number: US-ROCHE-2928479

PATIENT
  Age: 72 Year
  Sex: Female
  Weight: 69.6 kg

DRUGS (15)
  1. PLACEBO [Suspect]
     Active Substance: UNSPECIFIED INGREDIENT
     Indication: Bile duct cancer
     Dosage: 21/SEP/2021: START DATE OF MOST RECENT DOSE OF BEVACIZUMAB PRIOR TO SAE
     Route: 042
     Dates: start: 20210810
  2. ATEZOLIZUMAB [Suspect]
     Active Substance: ATEZOLIZUMAB
     Indication: Bile duct cancer
     Dosage: 21/SEP/2021 AND 23/NOV/2021:START DATE OF MOST RECENT DOSE(1200 MG) OF ATEZOLIZUMAB PRIOR TO SAE
     Route: 041
     Dates: start: 20210810
  3. CISPLATIN [Suspect]
     Active Substance: CISPLATIN
     Indication: Bile duct cancer
     Dosage: 17/AUG/2021:START DATE OF MOST RECENT DOSE(43 MG) OF CISPLATIN PRIOR TO SAE
     Route: 042
     Dates: start: 20210810
  4. GEMCITABINE [Suspect]
     Active Substance: GEMCITABINE
     Indication: Bile duct cancer
     Dosage: 28/SEP/2021 AND 23/NOV/2021:START DATE OF MOST RECENT DOSE(1368 MG) OF GEMCITABINE PRIOR TO SAE
     Route: 042
     Dates: start: 20210810
  5. COZAAR [Concomitant]
     Active Substance: LOSARTAN POTASSIUM
     Indication: Hypertension
     Dates: start: 20210111
  6. PRILOSEC [Concomitant]
     Active Substance: OMEPRAZOLE MAGNESIUM
     Indication: Varices oesophageal
     Dates: start: 20210402
  7. ZOCOR [Concomitant]
     Active Substance: SIMVASTATIN
     Dosage: PROPHYLACTIC FOR HIGH CHOLESTEROL
     Dates: start: 20210618
  8. INDERAL [Concomitant]
     Active Substance: PROPRANOLOL HYDROCHLORIDE
     Indication: Varices oesophageal
     Dates: start: 20210728
  9. ZOFRAN [Concomitant]
     Active Substance: ONDANSETRON HYDROCHLORIDE
     Dosage: NAUSEA/VOMITING PROPHYLAXIS
     Dates: start: 20210810
  10. BENADRYL [Concomitant]
     Active Substance: DIPHENHYDRAMINE HYDROCHLORIDE
     Dosage: PROPHYLACTIC FOR RASH/PRURITIS
     Route: 048
     Dates: start: 20210906
  11. KENALOG [Concomitant]
     Active Substance: TRIAMCINOLONE ACETONIDE
     Indication: Pruritus
     Route: 061
     Dates: start: 20210907
  12. KENALOG [Concomitant]
     Active Substance: TRIAMCINOLONE ACETONIDE
     Indication: Rash maculo-papular
  13. CHOLECALCIFEROL [Concomitant]
     Active Substance: CHOLECALCIFEROL
  14. TYLENOL [Concomitant]
     Active Substance: ACETAMINOPHEN
     Dates: start: 20210921
  15. DEMEROL [Concomitant]
     Active Substance: MEPERIDINE HYDROCHLORIDE
     Dates: start: 20210921

REACTIONS (3)
  - Diverticulitis intestinal perforated [Fatal]
  - Enterocolitis [Recovered/Resolved]
  - Diverticulitis [Recovered/Resolved]

NARRATIVE: CASE EVENT DATE: 20211004
